FAERS Safety Report 19805524 (Version 1)
Quarter: 2021Q3

REPORT INFORMATION
  Report Type: Spontaneous
  Country: FR (occurrence: FR)
  Receive Date: 20210908
  Receipt Date: 20210908
  Transmission Date: 20211014
  Serious: Yes (Hospitalization)
  Sender: FDA-Public Use
  Company Number: FR-MYLANLABS-2021M1058671

PATIENT
  Age: 40 Year
  Sex: Female
  Weight: 67 kg

DRUGS (2)
  1. DAFALGAN CODEINE [Suspect]
     Active Substance: ACETAMINOPHEN\CODEINE PHOSPHATE
     Indication: INTENTIONAL OVERDOSE
     Dosage: UNK (NP)
     Route: 048
     Dates: start: 20210301, end: 20210304
  2. ZOLPIDEM [Suspect]
     Active Substance: ZOLPIDEM TARTRATE
     Indication: INTENTIONAL OVERDOSE
     Dosage: UNK (NP)
     Route: 048
     Dates: start: 20210301, end: 20210304

REACTIONS (5)
  - Drug use disorder [Not Recovered/Not Resolved]
  - Epilepsy [Recovered/Resolved]
  - Poisoning deliberate [Recovered/Resolved]
  - Hepatitis acute [Recovered/Resolved]
  - Encephalopathy [Recovered/Resolved]

NARRATIVE: CASE EVENT DATE: 20210301
